FAERS Safety Report 14567869 (Version 1)
Quarter: 2018Q1

REPORT INFORMATION
  Report Type: Spontaneous
  Country: US (occurrence: US)
  Receive Date: 20180223
  Receipt Date: 20180223
  Transmission Date: 20180509
  Serious: No
  Sender: FDA-Public Use
  Company Number: US-FERRINGPH-2017FE02561

PATIENT
  Age: 19 Year
  Sex: Female

DRUGS (1)
  1. STIMATE [Suspect]
     Active Substance: DESMOPRESSIN ACETATE
     Indication: VON WILLEBRAND^S DISEASE
     Dosage: 1 SPRAY INTO EACH NOSTRIL, AS NEEDED
     Route: 045
     Dates: start: 20161025

REACTIONS (3)
  - Fatigue [Unknown]
  - Dizziness [Unknown]
  - Hot flush [Unknown]

NARRATIVE: CASE EVENT DATE: 20170524
